FAERS Safety Report 9728357 (Version 2)
Quarter: 2014Q1

REPORT INFORMATION
  Report Type: Spontaneous
  Country: IT (occurrence: IT)
  Receive Date: 20131204
  Receipt Date: 20140319
  Transmission Date: 20141002
  Serious: Yes (Other)
  Sender: FDA-Public Use
  Company Number: IT-JNJFOC-20131117198

PATIENT
  Age: 63 Year
  Sex: Female

DRUGS (2)
  1. TOPIRAMATE [Suspect]
     Indication: PARTIAL SEIZURES
     Route: 048
  2. LEVETIRACETAM [Suspect]
     Indication: PARTIAL SEIZURES
     Route: 065

REACTIONS (1)
  - Status epilepticus [Recovering/Resolving]
